FAERS Safety Report 8054643-7 (Version None)
Quarter: 2012Q1

REPORT INFORMATION
  Report Type: 
  Country: None (occurrence: None)
  Receive Date: 20120119
  Receipt Date: 20120112
  Transmission Date: 20120608
  Serious: Yes (Hospitalization, Other)
  Sender: FDA-Public Use
  Company Number: US-BAYER-200940313NA

PATIENT
  Age: 58 Year
  Sex: Female
  Weight: 99 kg

DRUGS (22)
  1. ACEON [Concomitant]
     Dosage: 4 MG, UNK
     Route: 048
     Dates: start: 20050201
  2. HEPARIN [Concomitant]
     Dosage: 30000 IU, UNK
     Route: 042
     Dates: start: 20061230, end: 20061230
  3. LOVENOX [Concomitant]
     Dosage: 90MG EVERY 12 HOURS
     Route: 058
  4. NOVOLOG [Concomitant]
     Dosage: 12 U, QD
     Route: 058
     Dates: start: 20050101
  5. MILRINONE [Concomitant]
     Dosage: 0.5 MG/MIN
     Route: 042
     Dates: start: 20061230, end: 20061230
  6. FENTANYL [Concomitant]
     Dosage: 10 CC
     Route: 042
     Dates: start: 20061230, end: 20061230
  7. INDOCIN [Concomitant]
  8. EPINEPHRINE [Concomitant]
     Dosage: RATE VARIED
     Route: 042
     Dates: start: 20061230, end: 20061230
  9. INSULIN [Concomitant]
  10. ANCEF [Concomitant]
     Dosage: 1 G, UNK
     Route: 042
     Dates: start: 20061230
  11. LOPRESSOR [Concomitant]
     Dosage: 100 MG, BID
     Route: 048
  12. ACTONEL [Concomitant]
     Dosage: 35 MG, OW
     Route: 048
     Dates: start: 20020101, end: 20060101
  13. COLCHICINE [Concomitant]
     Dosage: 0.6 MG, BID
     Route: 048
     Dates: start: 20050101, end: 20061201
  14. DOPAMINE HCL [Concomitant]
     Dosage: RATE VARIED
     Route: 042
     Dates: start: 20061230, end: 20061230
  15. AMIODARONE HCL [Concomitant]
     Dosage: 1 MG/MIN
     Route: 042
     Dates: start: 20061230, end: 20061230
  16. TRASYLOL [Suspect]
     Indication: CORONARY ARTERY BYPASS
     Route: 042
     Dates: start: 20061230
  17. VANCOMYCIN [Concomitant]
     Dosage: 2 G, UNK
     Route: 042
     Dates: start: 20061230, end: 20061230
  18. ACETYLSALICYLIC ACID SRT [Concomitant]
     Dosage: 81 MG, QD
     Route: 048
  19. NITROGLYCERIN [Concomitant]
     Indication: CHEST PAIN
     Dosage: 0.4 MG, PRN
     Route: 060
  20. TRASYLOL [Suspect]
     Indication: INTRA-AORTIC BALLOON PLACEMENT
     Dosage: 200 CC LOADING DOSE THEN 50 CC/HR
     Dates: start: 20061230, end: 20061230
  21. AMITRIPTYLINE HCL [Concomitant]
     Dosage: 10 MG, HS
     Route: 048
     Dates: start: 19970101
  22. PROTAMINE SULFATE [Concomitant]
     Dosage: 500 MG, UNK
     Route: 042
     Dates: start: 20061230, end: 20061230

REACTIONS (11)
  - RENAL IMPAIRMENT [None]
  - STRESS [None]
  - UNEVALUABLE EVENT [None]
  - FEAR [None]
  - RENAL INJURY [None]
  - PAIN [None]
  - RENAL FAILURE ACUTE [None]
  - ANHEDONIA [None]
  - EMOTIONAL DISTRESS [None]
  - ANXIETY [None]
  - INJURY [None]
